FAERS Safety Report 12402328 (Version 1)
Quarter: 2016Q2

REPORT INFORMATION
  Report Type: Spontaneous
  Country: JP (occurrence: JP)
  Receive Date: 20160525
  Receipt Date: 20160525
  Transmission Date: 20160815
  Serious: Yes (Other)
  Sender: FDA-Public Use
  Company Number: JP-PFIZER INC-2016264495

PATIENT
  Age: 72 Year
  Sex: Female

DRUGS (15)
  1. ETOPOSIDE. [Suspect]
     Active Substance: ETOPOSIDE
     Indication: OVARIAN CANCER
     Dosage: 400 MG, UNK
  2. CYCLOPHOSPHAMIDE. [Suspect]
     Active Substance: CYCLOPHOSPHAMIDE
     Indication: OVARIAN CANCER
     Dosage: 400 MG, UNK
  3. PACLITAXEL. [Suspect]
     Active Substance: PACLITAXEL
     Dosage: TOTAL DOSE 2,241 MG
  4. THERARUBICIN /00963101/ [Suspect]
     Active Substance: PIRARUBICIN HYDROCHLORIDE
     Indication: OVARIAN CANCER
     Dosage: 60 MG, UNK
  5. CISPLATIN. [Suspect]
     Active Substance: CISPLATIN
     Indication: OVARIAN CANCER
     Dosage: 80 MG, UNK
  6. THERARUBICIN /00963101/ [Suspect]
     Active Substance: PIRARUBICIN HYDROCHLORIDE
     Dosage: TOTAL DOSE 360 MG
  7. CARBOPLATIN. [Suspect]
     Active Substance: CARBOPLATIN
     Indication: OVARIAN CANCER
     Dosage: 400 MG, UNK
  8. CYCLOPHOSPHAMIDE. [Suspect]
     Active Substance: CYCLOPHOSPHAMIDE
     Dosage: TOTAL DOSE 2,400 MG
  9. IRINOTECAN HCL [Suspect]
     Active Substance: IRINOTECAN HYDROCHLORIDE
     Indication: OVARIAN CANCER
     Dosage: 100 MG/M2 ON DAY 1, 8, AND 15
  10. IRINOTECAN HCL [Suspect]
     Active Substance: IRINOTECAN HYDROCHLORIDE
     Dosage: TOTAL DOSE 2,382 MG
  11. CARBOPLATIN. [Suspect]
     Active Substance: CARBOPLATIN
     Dosage: 100 MG/M2, UNK
  12. CISPLATIN. [Suspect]
     Active Substance: CISPLATIN
     Dosage: TOTAL DOSE 160MG
  13. CARBOPLATIN. [Suspect]
     Active Substance: CARBOPLATIN
     Dosage: TOTAL DOSE 5,505 MG
  14. ETOPOSIDE. [Suspect]
     Active Substance: ETOPOSIDE
     Dosage: TOTAL DOSE 800MG
  15. PACLITAXEL. [Suspect]
     Active Substance: PACLITAXEL
     Indication: OVARIAN CANCER
     Dosage: 80 MG/M2, ON DAY 1, 8, AND 15

REACTIONS (6)
  - Sepsis [None]
  - Disseminated intravascular coagulation [None]
  - Cerebral haemorrhage [None]
  - Pneumonia [None]
  - Enterocolitis infectious [None]
  - Myelodysplastic syndrome [Not Recovered/Not Resolved]
